FAERS Safety Report 5256278-8 (Version None)
Quarter: 2007Q1

REPORT INFORMATION
  Report Type: 
  Country: None (occurrence: None)
  Receive Date: 20070302
  Receipt Date: 20070123
  Transmission Date: 20070707
  Serious: No
  Sender: FDA-Public Use
  Company Number: 07-025

PATIENT
  Sex: Female
  Weight: 68.0396 kg

DRUGS (1)
  1. CLONAZEPAM [Suspect]
     Dosage: ONCE A DAY

REACTIONS (1)
  - DRUG INEFFECTIVE [None]
